FAERS Safety Report 22067645 (Version 1)
Quarter: 2023Q1

REPORT INFORMATION
  Report Type: Other
  Country: FR (occurrence: FR)
  Receive Date: 20230307
  Receipt Date: 20230307
  Transmission Date: 20230418
  Serious: Yes (Death)
  Sender: FDA-Public Use
  Company Number: None

PATIENT

DRUGS (14)
  1. AMIODARONE [Suspect]
     Active Substance: AMIODARONE
     Indication: Atrial fibrillation
     Dosage: 200 MILLIGRAM, QD
     Route: 048
     Dates: start: 20230125, end: 20230211
  2. BISOPROLOL [Suspect]
     Active Substance: BISOPROLOL
     Indication: Atrial fibrillation
     Dosage: 5 MILLIGRAM, QD
     Route: 048
     Dates: start: 20230120, end: 20230211
  3. PAROXETINE [Suspect]
     Active Substance: PAROXETINE
     Indication: Depression
     Dosage: 20 MILLIGRAM, QD
     Route: 048
     Dates: start: 202302, end: 20230210
  4. CARBOPLATIN [Suspect]
     Active Substance: CARBOPLATIN
     Indication: Squamous cell carcinoma
     Dosage: 300 MILLIGRAM, QD
     Route: 042
     Dates: start: 20230210, end: 20230210
  5. DEXAMETHASONE [Suspect]
     Active Substance: DEXAMETHASONE
     Indication: Chemotherapy side effect prophylaxis
     Dosage: 20 MILLIGRAM, 1 TOTAL
     Route: 042
     Dates: start: 20230211, end: 20230211
  6. KARDEGIC [Suspect]
     Active Substance: ASPIRIN DL-LYSINE
     Indication: Arterial disorder
     Dosage: 75 MILLIGRAM, QD
     Route: 048
     Dates: end: 20230211
  7. ERBITUX [Suspect]
     Active Substance: CETUXIMAB
     Indication: Squamous cell carcinoma
     Dosage: 615 MILLIGRAM, 1 TOTAL
     Route: 042
     Dates: start: 20230211, end: 20230211
  8. GOMENOL [Suspect]
     Active Substance: NIAOULI OIL
     Indication: Bronchial secretion retention
     Dosage: 82.5 MILLIGRAM, QD
     Dates: start: 20230210, end: 20230211
  9. INNOHEP [Suspect]
     Active Substance: TINZAPARIN SODIUM
     Indication: Atrial fibrillation
     Dosage: 0.5 MILLILITER, QD
     Route: 058
     Dates: start: 20230131, end: 20230210
  10. ONDANSETRON [Suspect]
     Active Substance: ONDANSETRON
     Indication: Chemotherapy side effect prophylaxis
     Dosage: 8 MILLIGRAM, QD
     Route: 042
     Dates: start: 20230210, end: 20230210
  11. PANTOPRAZOLE [Suspect]
     Active Substance: PANTOPRAZOLE
     Indication: Prophylaxis against gastrointestinal ulcer
     Dosage: 40 MILLIGRAM, QD
     Route: 042
     Dates: start: 202301, end: 20230211
  12. PACLITAXEL [Suspect]
     Active Substance: PACLITAXEL
     Indication: Squamous cell carcinoma
     Dosage: 216 MILLIGRAM, QD
     Route: 042
     Dates: start: 20230210, end: 20230210
  13. ACETAMINOPHEN [Suspect]
     Active Substance: ACETAMINOPHEN
     Indication: Pain
     Dosage: 1 GRAM, AS NECESSARY
     Route: 042
     Dates: start: 20230208, end: 20230210
  14. POLARAMINE [Suspect]
     Active Substance: DEXCHLORPHENIRAMINE MALEATE
     Indication: Chemotherapy side effect prophylaxis
     Dosage: UNK
     Route: 042
     Dates: start: 20230211, end: 20230211

REACTIONS (1)
  - Sudden death [Fatal]

NARRATIVE: CASE EVENT DATE: 20230211
